FAERS Safety Report 23774067 (Version 3)
Quarter: 2024Q2

REPORT INFORMATION
  Report Type: Spontaneous
  Country: US (occurrence: US)
  Receive Date: 20240423
  Receipt Date: 20240515
  Transmission Date: 20240716
  Serious: Yes (Death, Life-Threatening, Hospitalization, Other)
  Sender: FDA-Public Use
  Company Number: US-MLMSERVICE-20240411-PI023631-00218-1

PATIENT
  Age: 51 Year
  Sex: Female

DRUGS (4)
  1. METHOTREXATE SODIUM [Suspect]
     Active Substance: METHOTREXATE SODIUM
     Indication: Rheumatoid arthritis
     Dosage: 15 MG, 1X/DAY
  2. METHOTREXATE SODIUM [Suspect]
     Active Substance: METHOTREXATE SODIUM
     Dosage: 15 MG, WEEKLY
  3. PREDNISONE [Concomitant]
     Active Substance: PREDNISONE
     Indication: Rheumatoid arthritis
     Dosage: 5 MG, 1X/DAY
  4. APIXABAN [Concomitant]
     Active Substance: APIXABAN
     Indication: Pulmonary embolism
     Dosage: UNK

REACTIONS (14)
  - Cardiac arrest [Fatal]
  - Inappropriate schedule of product administration [Unknown]
  - Anticoagulation drug level above therapeutic [Unknown]
  - Acute hepatic failure [Unknown]
  - Lactic acidosis [Unknown]
  - Septic shock [Unknown]
  - Klebsiella infection [Unknown]
  - Pancytopenia [Unknown]
  - Hypotension [Unknown]
  - Gastrointestinal haemorrhage [Unknown]
  - Escherichia infection [Unknown]
  - Acute kidney injury [Unknown]
  - Mouth ulceration [Unknown]
  - Mucosal ulceration [Unknown]
